FAERS Safety Report 16869417 (Version 1)
Quarter: 2019Q3

REPORT INFORMATION
  Report Type: Report from Study
  Country: US (occurrence: US)
  Receive Date: 20190930
  Receipt Date: 20190930
  Transmission Date: 20191005
  Serious: Yes (Hospitalization, Other)
  Sender: FDA-Public Use
  Company Number: US-ELI_LILLY_AND_COMPANY-US201909008233

PATIENT
  Sex: Female

DRUGS (3)
  1. TERIPARATIDE [Suspect]
     Active Substance: TERIPARATIDE
     Indication: PRODUCT USED FOR UNKNOWN INDICATION
     Dosage: UNK UNK, UNKNOWN
     Route: 065
     Dates: start: 20190815
  2. ALEVE [Concomitant]
     Active Substance: NAPROXEN SODIUM
     Indication: PRODUCT USED FOR UNKNOWN INDICATION
  3. TERIPARATIDE [Suspect]
     Active Substance: TERIPARATIDE
     Dosage: UNK UNK, UNKNOWN
     Route: 065
     Dates: start: 20190815

REACTIONS (21)
  - Arthralgia [Not Recovered/Not Resolved]
  - Insomnia [Unknown]
  - Back pain [Unknown]
  - Myalgia [Not Recovered/Not Resolved]
  - Cyst [Unknown]
  - Feeling abnormal [Unknown]
  - Injection site haematoma [Unknown]
  - Spinal cord injury [Unknown]
  - Fatigue [Recovering/Resolving]
  - Back injury [Unknown]
  - Fall [Unknown]
  - Breast cancer [Unknown]
  - Dyspnoea [Unknown]
  - Fat tissue increased [Unknown]
  - Pain in extremity [Unknown]
  - Nausea [Recovering/Resolving]
  - Mobility decreased [Unknown]
  - Thinking abnormal [Unknown]
  - Confusional state [Unknown]
  - Injection site pain [Unknown]
  - Injection site bruising [Not Recovered/Not Resolved]

NARRATIVE: CASE EVENT DATE: 20190815
